FAERS Safety Report 16796738 (Version 1)
Quarter: 2019Q3

REPORT INFORMATION
  Report Type: Report from Study
  Country: US (occurrence: US)
  Receive Date: 20190911
  Receipt Date: 20190911
  Transmission Date: 20191005
  Serious: Yes (Death)
  Sender: FDA-Public Use
  Company Number: US-EXELIXIS-CABO-19021650

PATIENT
  Age: 53 Year
  Sex: Female

DRUGS (1)
  1. CABOMETYX [Suspect]
     Active Substance: CABOZANTINIB S-MALATE
     Indication: RENAL CANCER
     Dosage: 60 MG, QD
     Dates: start: 20190605

REACTIONS (3)
  - Death [Fatal]
  - Urinary tract infection [Unknown]
  - Weight decreased [Unknown]

NARRATIVE: CASE EVENT DATE: 201907
